FAERS Safety Report 4741744-1 (Version None)
Quarter: 2005Q3

REPORT INFORMATION
  Report Type: 
  Country: None (occurrence: None)
  Receive Date: 20050804
  Receipt Date: 20050419
  Transmission Date: 20060218
  Serious: No
  Sender: FDA-Public Use
  Company Number: WAES 0504USA03541

PATIENT

DRUGS (2)
  1. EMEND [Suspect]
     Indication: PROPHYLACTIC CHEMOTHERAPY
     Dosage: 80 MG/DAILY/PO
     Route: 048
     Dates: start: 20050413, end: 20050414
  2. CYCLOPHOSPHAMIDE [Concomitant]

REACTIONS (3)
  - MEDICATION ERROR [None]
  - NAUSEA [None]
  - VOMITING [None]
